FAERS Safety Report 8388415-0 (Version None)
Quarter: 2012Q2

REPORT INFORMATION
  Report Type: 
  Country: None (occurrence: None)
  Receive Date: 20120525
  Receipt Date: 20120523
  Transmission Date: 20120825
  Serious: Yes (Hospitalization)
  Sender: FDA-Public Use
  Company Number: DE-ABBOTT-12P-062-0900382-00

PATIENT
  Sex: Male

DRUGS (4)
  1. CORTISONE ACETATE [Concomitant]
     Indication: RHEUMATOID ARTHRITIS
  2. PANTOPRAZOLE [Concomitant]
     Indication: PRODUCT USED FOR UNKNOWN INDICATION
  3. HUMIRA [Suspect]
     Indication: RHEUMATOID ARTHRITIS
     Route: 058
     Dates: start: 20110810, end: 20120101
  4. ANALGESIC [Concomitant]
     Indication: RHEUMATOID ARTHRITIS
     Dosage: 1 TAB IN EVENING

REACTIONS (1)
  - BRAIN NEOPLASM BENIGN [None]
